FAERS Safety Report 10188055 (Version 1)
Quarter: 2014Q2

REPORT INFORMATION
  Report Type: Report from Study
  Country: JP (occurrence: JP)
  Receive Date: 20140522
  Receipt Date: 20140522
  Transmission Date: 20141212
  Serious: Yes (Death, Hospitalization)
  Sender: FDA-Public Use
  Company Number: JP-NOVOPROD-410762

PATIENT
  Age: 88 Year
  Sex: Female
  Weight: 44 kg

DRUGS (2)
  1. LIRAGLUTIDE FLEXPEN [Suspect]
     Indication: TYPE 2 DIABETES MELLITUS
     Dosage: 0.3 MG, QD
     Route: 058
     Dates: start: 20120427
  2. LIRAGLUTIDE FLEXPEN [Suspect]
     Dosage: 0.9 MG
     Route: 058
     Dates: start: 20120523, end: 20121025

REACTIONS (2)
  - Renal failure [Fatal]
  - Pneumonia [Unknown]
